FAERS Safety Report 18118520 (Version 1)
Quarter: 2020Q3

REPORT INFORMATION
  Report Type: Spontaneous
  Country: RU (occurrence: RU)
  Receive Date: 20200806
  Receipt Date: 20200806
  Transmission Date: 20201103
  Serious: Yes (Hospitalization)
  Sender: FDA-Public Use
  Company Number: RU-BAYER-2020-154974

PATIENT
  Age: 56 Year
  Sex: Male

DRUGS (2)
  1. CIPROFLOXACIN. [Suspect]
     Active Substance: CIPROFLOXACIN
     Dosage: UNK
     Dates: start: 201906, end: 201906
  2. CIPROFLOXACIN. [Suspect]
     Active Substance: CIPROFLOXACIN
     Dosage: 500 MG, BID
     Route: 048
     Dates: start: 20190625

REACTIONS (8)
  - Vascular device infection [None]
  - Asthenia [None]
  - Spinal pain [Not Recovered/Not Resolved]
  - Chills [None]
  - Tricuspid valve incompetence [None]
  - Electrocardiogram abnormal [None]
  - Dyspnoea exertional [None]
  - Drug ineffective [None]

NARRATIVE: CASE EVENT DATE: 201906
